FAERS Safety Report 20104875 (Version 1)
Quarter: 2021Q4

REPORT INFORMATION
  Report Type: Spontaneous
  Country: CN (occurrence: None)
  Receive Date: 20211124
  Receipt Date: 20211124
  Transmission Date: 20220304
  Serious: Yes (Other)
  Sender: FDA-Public Use
  Company Number: CN-ROCHE-2958313

PATIENT
  Age: 49 Year
  Sex: Female
  Weight: 70 kg

DRUGS (4)
  1. PERJETA [Suspect]
     Active Substance: PERTUZUMAB
     Indication: Breast cancer
     Route: 041
     Dates: start: 20211109, end: 20211109
  2. PERJETA [Suspect]
     Active Substance: PERTUZUMAB
     Route: 041
     Dates: start: 20211110, end: 20211110
  3. HERCEPTIN [Suspect]
     Active Substance: TRASTUZUMAB
     Indication: Breast cancer
     Route: 041
     Dates: start: 20211109, end: 20211109
  4. SODIUM CHLORIDE [Concomitant]
     Active Substance: SODIUM CHLORIDE
     Route: 041
     Dates: start: 20211109, end: 20211109

REACTIONS (2)
  - Hyperpyrexia [Recovered/Resolved]
  - Temperature intolerance [Recovered/Resolved]

NARRATIVE: CASE EVENT DATE: 20211109
